FAERS Safety Report 7406283-8 (Version None)
Quarter: 2011Q2

REPORT INFORMATION
  Report Type: 
  Country: None (occurrence: None)
  Receive Date: 20110411
  Receipt Date: 20110401
  Transmission Date: 20111010
  Serious: Yes (Hospitalization)
  Sender: FDA-Public Use
  Company Number: DE-JNJFOC-20100501911

PATIENT
  Sex: Female
  Weight: 44.7 kg

DRUGS (7)
  1. CAELYX [Suspect]
     Route: 042
  2. YONDELIS [Suspect]
     Indication: OVARIAN CANCER RECURRENT
     Dosage: DOSE: COMBO 1,1 MG/M2CYCLE NUMBER 2
     Route: 042
  3. KEVATRIL [Concomitant]
     Route: 065
  4. DEXAMETHASONE [Concomitant]
     Route: 065
  5. YONDELIS [Suspect]
     Dosage: 1ST CYCLE START DATE
     Route: 042
  6. CAELYX [Suspect]
     Indication: ILL-DEFINED DISORDER
     Route: 042
  7. DEXAMETHASONE [Concomitant]
     Route: 042

REACTIONS (1)
  - RHABDOMYOLYSIS [None]
